FAERS Safety Report 18521574 (Version 1)
Quarter: 2020Q4

REPORT INFORMATION
  Report Type: Spontaneous
  Country: US (occurrence: US)
  Receive Date: 20201119
  Receipt Date: 20201119
  Transmission Date: 20210114
  Serious: Yes (Death, Hospitalization, Other)
  Sender: FDA-Public Use
  Company Number: US-LUPIN PHARMACEUTICALS INC.-2020-09035

PATIENT
  Sex: Female

DRUGS (2)
  1. TREXALL [Suspect]
     Active Substance: METHOTREXATE SODIUM
     Indication: DEPRESSION
     Dosage: 1 DOSAGE FORM, QD
     Route: 065
  2. PAROXETINE HYDROCHLORIDE. [Suspect]
     Active Substance: PAROXETINE HYDROCHLORIDE
     Indication: DEPRESSION
     Dosage: 1 DOSAGE FORM, QD
     Route: 065

REACTIONS (4)
  - Critical illness [Fatal]
  - Product name confusion [Fatal]
  - Product dispensing error [Fatal]
  - Wrong product administered [Fatal]
